FAERS Safety Report 9838393 (Version 2)
Quarter: 2014Q1

REPORT INFORMATION
  Report Type: Spontaneous
  Country: US (occurrence: US)
  Receive Date: 20140123
  Receipt Date: 20140123
  Transmission Date: 20141002
  Serious: No
  Sender: FDA-Public Use
  Company Number: US-GILEAD-2011-0045901

PATIENT
  Age: 13 Year
  Sex: Female

DRUGS (4)
  1. CAYSTON [Suspect]
     Indication: CYSTIC FIBROSIS
     Dosage: UNK
     Route: 055
     Dates: start: 20111011, end: 201110
  2. CAYSTON [Suspect]
     Indication: BRONCHIECTASIS
     Dosage: UNK
     Route: 055
     Dates: start: 201005, end: 201009
  3. CAYSTON [Suspect]
     Dosage: UNK
     Route: 055
     Dates: start: 201003, end: 201003
  4. TOBI [Concomitant]
     Dosage: UNK

REACTIONS (1)
  - Haemoptysis [Recovered/Resolved]
